FAERS Safety Report 21274738 (Version 1)
Quarter: 2022Q3

REPORT INFORMATION
  Report Type: Spontaneous
  Country: DE (occurrence: DE)
  Receive Date: 20220831
  Receipt Date: 20220831
  Transmission Date: 20221026
  Serious: Yes (Life-Threatening, Hospitalization, Disabling, Other)
  Sender: FDA-Public Use
  Company Number: DE-DCGMA-22199257

PATIENT
  Age: 86 Year
  Sex: Male
  Weight: 80 kg

DRUGS (6)
  1. CELECOXIB [Interacting]
     Active Substance: CELECOXIB
     Indication: Atrial fibrillation
     Dosage: UNKNOWN DOSAGE
  2. XARELTO [Suspect]
     Active Substance: RIVAROXABAN
     Indication: Atrial fibrillation
     Dosage: 20 MG, 1X/DAY
  3. NALOXONE HYDROCHLORIDE\OXYCODONE HYDROCHLORIDE [Concomitant]
     Active Substance: NALOXONE HYDROCHLORIDE\OXYCODONE HYDROCHLORIDE
  4. CANDESARTAN [Concomitant]
     Active Substance: CANDESARTAN
  5. METAMIZOLE [Concomitant]
     Active Substance: METAMIZOLE
  6. ATORVASTATIN [Concomitant]
     Active Substance: ATORVASTATIN

REACTIONS (2)
  - Cerebral haemorrhage [Not Recovered/Not Resolved]
  - Labelled drug-drug interaction issue [Not Recovered/Not Resolved]

NARRATIVE: CASE EVENT DATE: 20220811
